FAERS Safety Report 9182720 (Version 1)
Quarter: 2012Q4

REPORT INFORMATION
  Report Type: 
  Country: US (occurrence: US)
  Receive Date: 20121031
  Receipt Date: 20121031
  Transmission Date: 20130627
  Serious: No
  Sender: FDA-Public Use
  Company Number: US-B.I. PHARMACEUTICALS,INC./RIDGEFIELD-2012-BP-26836BP

PATIENT
  Sex: Male

DRUGS (1)
  1. MICARDIS HCT [Suspect]

REACTIONS (2)
  - Dizziness [Unknown]
  - Balance disorder [Unknown]
